FAERS Safety Report 6310373-0 (Version None)
Quarter: 2009Q3

REPORT INFORMATION
  Report Type: 
  Country: None (occurrence: None)
  Receive Date: 20090811
  Receipt Date: 20090729
  Transmission Date: 20100115
  Serious: Yes (Other)
  Sender: FDA-Public Use
  Company Number: 2009AP003011

PATIENT
  Age: 61 Year
  Sex: Female

DRUGS (3)
  1. FLUOXETINE HYDROCHLORIDE [Suspect]
     Indication: DEPRESSION
     Dosage: 8 ML;QD;PO
     Route: 048
     Dates: start: 20080201
  2. FLUOXETINE [Concomitant]
  3. HYDROCHLORIDE [Concomitant]

REACTIONS (5)
  - COGNITIVE DISORDER [None]
  - DEPRESSED MOOD [None]
  - DRUG INEFFECTIVE [None]
  - IRRITABILITY [None]
  - PRODUCT SUBSTITUTION ISSUE [None]
